FAERS Safety Report 4608285-3 (Version None)
Quarter: 2005Q1

REPORT INFORMATION
  Report Type: 
  Country: None (occurrence: None)
  Receive Date: 20050311
  Receipt Date: 20050225
  Transmission Date: 20050727
  Serious: Yes (Disabling)
  Sender: FDA-Public Use
  Company Number: PHHO2005DE03419

PATIENT
  Age: 66 Year
  Sex: Male
  Weight: 102.014 kg

DRUGS (2)
  1. VISUDYNE [Suspect]
     Indication: CHOROIDAL NEOVASCULARISATION
     Dosage: 30 ML DAILY IV
     Route: 042
     Dates: start: 20040120, end: 20040120
  2. VISUDYNE [Suspect]
     Indication: MACULAR DEGENERATION
     Dosage: 30 ML DAILY IV
     Route: 042
     Dates: start: 20040120, end: 20040120

REACTIONS (4)
  - DISEASE PROGRESSION [None]
  - RETINAL HAEMORRHAGE [None]
  - RETINAL TEAR [None]
  - VISUAL ACUITY REDUCED [None]
